FAERS Safety Report 9491397 (Version 2)
Quarter: 2013Q3

REPORT INFORMATION
  Report Type: Report from Study
  Country: JP (occurrence: JP)
  Receive Date: 20130830
  Receipt Date: 20130830
  Transmission Date: 20140515
  Serious: Yes (Hospitalization)
  Sender: FDA-Public Use
  Company Number: PHHO2010JP00602

PATIENT
  Age: 72 Year
  Sex: Male
  Weight: 83 kg

DRUGS (34)
  1. ALISKIREN [Suspect]
     Indication: CARDIOVASCULAR DISORDER
     Route: 048
     Dates: start: 20090105, end: 20090202
  2. ALISKIREN [Suspect]
     Route: 048
     Dates: start: 20090203, end: 20091228
  3. ALISKIREN [Suspect]
     Route: 048
     Dates: start: 20110511, end: 20110614
  4. ALISKIREN [Suspect]
     Route: 048
     Dates: start: 20110615, end: 20111221
  5. DIOVAN [Concomitant]
     Indication: HYPERTENSION
     Dosage: 160 MG, UNK
     Route: 048
     Dates: start: 20050907
  6. DIOVAN [Concomitant]
     Dosage: 80 MG, UNK
     Route: 048
  7. AMARYL [Concomitant]
     Indication: TYPE 2 DIABETES MELLITUS
     Dosage: 6 MG, UNK
     Route: 048
     Dates: start: 20090621, end: 20091228
  8. LASIX [Concomitant]
     Indication: HYPERTENSION
     Dosage: 50 MG, UNK
     Route: 048
     Dates: start: 20080415
  9. LASIX [Concomitant]
     Dosage: 50 MG, UNK
     Route: 048
  10. LASIX [Concomitant]
     Dosage: 40 MG, UNK
     Route: 048
  11. LASIX [Concomitant]
     Dosage: 60 MG, UNK
     Route: 048
     Dates: start: 20071212
  12. ALLOPURINOL [Concomitant]
     Indication: HYPERURICAEMIA
     Dosage: 100 MG, UNK
     Route: 048
     Dates: start: 20071212
  13. ALLOPURINOL [Concomitant]
     Dosage: 100 MG, UNK
     Route: 048
  14. NORVASC [Concomitant]
     Indication: HYPERTENSION
     Dosage: 7.5 MG, UNK
     Route: 048
     Dates: start: 20090728
  15. NORVASC [Concomitant]
     Dosage: 5 MG, UNK
     Route: 048
  16. NORVASC [Concomitant]
     Dosage: 2.5 MG, UNK
     Route: 048
  17. NORVASC [Concomitant]
     Dosage: 2.5 MG, UNK
     Route: 048
     Dates: start: 20100219
  18. GLYCORAN [Concomitant]
     Indication: TYPE 2 DIABETES MELLITUS
     Dosage: 1000 MG, UNK
     Route: 048
     Dates: start: 20080521, end: 20091228
  19. JUVELA [Concomitant]
     Indication: HYPERKERATOSIS
     Route: 062
     Dates: start: 20081015
  20. JUVELA [Concomitant]
     Route: 062
  21. MENTAX [Concomitant]
     Indication: TINEA INFECTION
     Route: 062
     Dates: start: 19950311
  22. MENTAX [Concomitant]
     Route: 062
  23. MENTAX [Concomitant]
     Route: 062
  24. NOVORAPID [Concomitant]
     Indication: TYPE 2 DIABETES MELLITUS
     Dosage: 21 IU, UNK
     Route: 058
     Dates: start: 20100105
  25. NOVORAPID [Concomitant]
     Dosage: 8 IU, UNK
     Route: 058
     Dates: start: 20121219
  26. LANTUS [Concomitant]
     Indication: TYPE 2 DIABETES MELLITUS
     Dosage: 8 IU, UNK
     Route: 058
     Dates: start: 20100105
  27. LANTUS [Concomitant]
     Dosage: 6 IU, UNK
     Route: 058
     Dates: start: 20121119
  28. XALATAN [Concomitant]
     Indication: GLAUCOMA
     Route: 047
     Dates: start: 20110525
  29. BAYASPIRIN [Concomitant]
     Indication: THROMBOSIS PROPHYLAXIS
     Dosage: 100 MG, UNK
     Route: 048
     Dates: start: 20100825
  30. PLAVIX [Concomitant]
     Indication: THROMBOSIS PROPHYLAXIS
     Dosage: 75 MG, UNK
     Route: 048
     Dates: start: 20100825
  31. ZYLORIC [Concomitant]
     Indication: HYPERURICAEMIA
     Dosage: 100 MG, UNK
     Route: 048
     Dates: start: 20110624
  32. ANTEBATE [Concomitant]
     Indication: TINEA INFECTION
     Route: 061
     Dates: start: 20121130
  33. HIRUDOID [Concomitant]
     Indication: TINEA INFECTION
     Route: 061
     Dates: start: 20121130
  34. PARIET [Concomitant]
     Indication: PEPTIC ULCER
     Dosage: 10 MG, UNK
     Route: 048
     Dates: start: 20120710

REACTIONS (10)
  - Cardiac failure congestive [Recovering/Resolving]
  - Nephrotic syndrome [Recovering/Resolving]
  - Angina pectoris [Recovering/Resolving]
  - Arterial occlusive disease [Recovering/Resolving]
  - Dyspnoea [Recovered/Resolved]
  - Oedema peripheral [Recovering/Resolving]
  - Cardiomegaly [Recovering/Resolving]
  - Ventricular hypokinesia [Recovering/Resolving]
  - Hyperkalaemia [Unknown]
  - Generalised oedema [Recovered/Resolved]
